FAERS Safety Report 8805519 (Version 1)
Quarter: 2012Q4

REPORT INFORMATION
  Report Type: 
  Country: NL (occurrence: NL)
  Receive Date: 20120924
  Receipt Date: 20120924
  Transmission Date: 20130627
  Serious: Yes (Other)
  Sender: FDA-Public Use
  Company Number: NL-MYLANLABS-2012S1018956

PATIENT
  Age: 54 Year
  Sex: Male

DRUGS (1)
  1. AMLODIPINE [Suspect]
     Indication: HYPERTENSION
     Dosage: 1x 10mg
     Route: 048
     Dates: start: 20061122, end: 20120701

REACTIONS (5)
  - Adrenal disorder [Recovering/Resolving]
  - Fatigue [Recovering/Resolving]
  - Burning sensation [Recovering/Resolving]
  - Abdominal pain lower [Recovering/Resolving]
  - Rectal tenesmus [Recovering/Resolving]
